FAERS Safety Report 10173674 (Version 4)
Quarter: 2015Q4

REPORT INFORMATION
  Report Type: Spontaneous
  Country: JP (occurrence: JP)
  Receive Date: 20140515
  Receipt Date: 20151116
  Transmission Date: 20160304
  Serious: Yes (Other)
  Sender: FDA-Public Use
  Company Number: JP-JNJFOC-20140507899

PATIENT
  Age: 65 Year
  Sex: Male

DRUGS (2)
  1. MESALAZINE [Concomitant]
     Active Substance: MESALAMINE
     Route: 065
  2. REMICADE [Suspect]
     Active Substance: INFLIXIMAB
     Indication: CROHN^S DISEASE
     Dosage: SINCE THREE MONTHS
     Route: 042

REACTIONS (5)
  - Laryngeal oedema [Recovered/Resolved]
  - Laryngeal ulceration [Recovered/Resolved]
  - Aphthous ulcer [Recovered/Resolved]
  - Nasopharyngitis [Recovering/Resolving]
  - Throat lesion [Recovering/Resolving]

NARRATIVE: CASE EVENT DATE: 201403
